FAERS Safety Report 19196385 (Version 2)
Quarter: 2021Q2

REPORT INFORMATION
  Report Type: Report from Study
  Country: MX (occurrence: MX)
  Receive Date: 20210429
  Receipt Date: 20210514
  Transmission Date: 20210717
  Serious: Yes (Other)
  Sender: FDA-Public Use
  Company Number: NVSC2021MX091984

PATIENT
  Sex: Male
  Weight: 53 kg

DRUGS (1)
  1. COSENTYX [Suspect]
     Active Substance: SECUKINUMAB
     Indication: PSORIASIS
     Dosage: 150 MG, QMO (1 APPLICATION)
     Route: 030

REACTIONS (3)
  - Incorrect route of product administration [Unknown]
  - Diabetes mellitus [Unknown]
  - Product prescribing error [Unknown]
